FAERS Safety Report 24076318 (Version 1)
Quarter: 2024Q3

REPORT INFORMATION
  Report Type: Spontaneous
  Country: US (occurrence: US)
  Receive Date: 20240711
  Receipt Date: 20240711
  Transmission Date: 20241016
  Serious: No
  Sender: SANOFI AVENTIS
  Company Number: US-SA-SAC20240702001250

PATIENT
  Age: 68 Year
  Sex: Female

DRUGS (1)
  1. DUPIXENT [Suspect]
     Active Substance: DUPILUMAB
     Indication: Eczema
     Dosage: 300 MG, QOW
     Route: 058
     Dates: start: 202310, end: 202404

REACTIONS (5)
  - Dry skin [Unknown]
  - Vision blurred [Unknown]
  - Erythema [Unknown]
  - Pruritus [Unknown]
  - Incorrect dose administered [Unknown]
